APPROVED DRUG PRODUCT: VUMON
Active Ingredient: TENIPOSIDE
Strength: 10MG/ML
Dosage Form/Route: INJECTABLE;INJECTION
Application: N020119 | Product #001
Applicant: HQ SPECIALTY PHARMA
Approved: Jul 14, 1992 | RLD: Yes | RS: No | Type: DISCN